FAERS Safety Report 9312893 (Version 4)
Quarter: 2014Q3

REPORT INFORMATION
  Report Type: Spontaneous
  Country: US (occurrence: US)
  Receive Date: 20130528
  Receipt Date: 20140825
  Transmission Date: 20150326
  Serious: Yes (Other)
  Sender: FDA-Public Use
  Company Number: US-009507513-1305USA011630

PATIENT
  Sex: Male

DRUGS (2)
  1. PROPECIA [Suspect]
     Active Substance: FINASTERIDE
     Indication: ALOPECIA
     Dosage: 1 MG, UNK
     Route: 048
     Dates: start: 200906, end: 201105
  2. FINASTERIDE. [Suspect]
     Active Substance: FINASTERIDE
     Indication: ALOPECIA
     Dosage: 1 MG, UNK
     Route: 048
     Dates: start: 200906, end: 201105

REACTIONS (12)
  - Sexual dysfunction [Not Recovered/Not Resolved]
  - Semen volume decreased [Unknown]
  - Eczema [Unknown]
  - Testicular failure [Unknown]
  - Hypogonadism [Unknown]
  - Erectile dysfunction [Not Recovered/Not Resolved]
  - Testicular disorder [Unknown]
  - Epicondylitis [Unknown]
  - Renal failure chronic [Not Recovered/Not Resolved]
  - Hyperlipidaemia [Unknown]
  - Dyshidrotic eczema [Unknown]
  - Loss of libido [Unknown]

NARRATIVE: CASE EVENT DATE: 20100830
